FAERS Safety Report 19893888 (Version 1)
Quarter: 2021Q3

REPORT INFORMATION
  Report Type: Spontaneous
  Country: US (occurrence: US)
  Receive Date: 20210929
  Receipt Date: 20210929
  Transmission Date: 20211014
  Serious: Yes (Other)
  Sender: FDA-Public Use
  Company Number: US-LUPIN PHARMACEUTICALS INC.-2021-18437

PATIENT
  Age: 7 Year
  Sex: Female

DRUGS (3)
  1. METHYLPHENIDATE. [Suspect]
     Active Substance: METHYLPHENIDATE
     Indication: SOMNOLENCE
     Dosage: UNK (STARTED ON A LOW DOSE, AND THEN HIGHER DOSE)
     Route: 065
  2. MODAFINIL. [Concomitant]
     Active Substance: MODAFINIL
     Indication: SOMNOLENCE
     Dosage: UNK
     Route: 065
  3. VENLAFAXINE [Concomitant]
     Active Substance: VENLAFAXINE HYDROCHLORIDE
     Indication: CATAPLEXY
     Dosage: UNK
     Route: 065

REACTIONS (1)
  - Hallucination, tactile [Recovering/Resolving]
